FAERS Safety Report 16995954 (Version 2)
Quarter: 2019Q4

REPORT INFORMATION
  Report Type: Spontaneous
  Country: US (occurrence: US)
  Receive Date: 20191105
  Receipt Date: 20191119
  Transmission Date: 20200122
  Serious: Yes (Other)
  Sender: FDA-Public Use
  Company Number: US-ALLERGAN-1928700US

PATIENT
  Sex: Female

DRUGS (2)
  1. TRIPTORELIN PAMOATE - BP [Suspect]
     Active Substance: TRIPTORELIN PAMOATE
     Indication: PRODUCT USED FOR UNKNOWN INDICATION
     Dosage: UNK, SINGLE
     Route: 030
     Dates: start: 20190918, end: 20190918
  2. TRIPTORELIN PAMOATE - BP [Suspect]
     Active Substance: TRIPTORELIN PAMOATE
     Dosage: UNK UNK, SINGLE
     Route: 030
     Dates: start: 20180918, end: 20180918

REACTIONS (2)
  - Lower limb fracture [Unknown]
  - Weight increased [Unknown]

NARRATIVE: CASE EVENT DATE: 201910
